FAERS Safety Report 10312868 (Version 1)
Quarter: 2014Q3

REPORT INFORMATION
  Report Type: Spontaneous
  Country: US (occurrence: None)
  Receive Date: 20140717
  Receipt Date: 20140717
  Transmission Date: 20150326
  Serious: Yes (Hospitalization)
  Sender: FDA-Public Use
  Company Number: None

PATIENT
  Age: 63 Year
  Sex: Female

DRUGS (2)
  1. IMBRUVICA [Suspect]
     Active Substance: IBRUTINIB
     Indication: HYPOKALAEMIA
     Dosage: 140 MG, TAKE 3 DAILY
     Route: 048
     Dates: start: 20140312
  2. IMBRUVICA [Suspect]
     Active Substance: IBRUTINIB
     Indication: B-CELL LYMPHOMA STAGE II
     Dosage: 140 MG, TAKE 3 DAILY
     Route: 048
     Dates: start: 20140312

REACTIONS (1)
  - Pneumonia fungal [None]

NARRATIVE: CASE EVENT DATE: 20140715
